FAERS Safety Report 8322525-9 (Version None)
Quarter: 2012Q2

REPORT INFORMATION
  Report Type: 
  Country: None (occurrence: None)
  Receive Date: 20120430
  Receipt Date: 20120419
  Transmission Date: 20120825
  Serious: Yes (Hospitalization)
  Sender: FDA-Public Use
  Company Number: AU-ASTRAZENECA-2012SE25901

PATIENT
  Age: 16394 Day
  Sex: Male

DRUGS (2)
  1. PLAVIX [Concomitant]
  2. CRESTOR [Suspect]
     Route: 048
     Dates: start: 20101201

REACTIONS (6)
  - MUSCLE SPASMS [None]
  - AMNESIA [None]
  - MAJOR DEPRESSION [None]
  - CHEST PAIN [None]
  - ABDOMINAL PAIN UPPER [None]
  - MALAISE [None]
